FAERS Safety Report 5330393-2 (Version None)
Quarter: 2007Q2

REPORT INFORMATION
  Report Type: 
  Country: None (occurrence: None)
  Receive Date: 20070521
  Receipt Date: 20070516
  Transmission Date: 20071010
  Serious: Yes (Other)
  Sender: FDA-Public Use
  Company Number: DE-ROXANE LABORATORIES, INC-2007-DE-02942DE

PATIENT
  Sex: Female
  Weight: 80 kg

DRUGS (2)
  1. GLADEM [Suspect]
     Route: 048
  2. LORAZEPAM [Suspect]
     Route: 048

REACTIONS (6)
  - DRUG ABUSER [None]
  - HYPOTENSION [None]
  - OVERDOSE [None]
  - SOMNOLENCE [None]
  - SUICIDE ATTEMPT [None]
  - TACHYCARDIA [None]
